FAERS Safety Report 15397741 (Version 1)
Quarter: 2018Q3

REPORT INFORMATION
  Report Type: Spontaneous
  Country: DE (occurrence: DE)
  Receive Date: 20180918
  Receipt Date: 20180918
  Transmission Date: 20181010
  Serious: Yes (Hospitalization)
  Sender: FDA-Public Use
  Company Number: DE-PFIZER INC-2018371633

PATIENT
  Age: 50 Year
  Sex: Female
  Weight: 50 kg

DRUGS (11)
  1. DOXORUBICIN [Suspect]
     Active Substance: DOXORUBICIN
     Indication: BREAST CANCER
     Dosage: 31.5 MG, UNK
     Route: 042
     Dates: start: 20120905
  2. ATROVENT [Concomitant]
     Active Substance: IPRATROPIUM BROMIDE
     Dosage: UNK
  3. JONOSTERIL [CALCIUM ACETATE;MAGNESIUM ACETATE;POTASSIUM ACETATE;SODIUM [Concomitant]
     Dosage: UNK
  4. ERYTHROMYCIN. [Concomitant]
     Active Substance: ERYTHROMYCIN
     Dosage: UNK
  5. TRASTUZUMAB. [Suspect]
     Active Substance: TRASTUZUMAB
     Indication: BREAST CANCER
     Dosage: 303 MG, 1X/DAY
     Route: 042
     Dates: start: 20120905
  6. TAZOBAC [Concomitant]
     Active Substance: PIPERACILLIN SODIUM\TAZOBACTAM SODIUM
     Dosage: UNK
  7. SULTANOL [Concomitant]
     Active Substance: ALBUTEROL SULFATE
     Dosage: UNK
  8. TYKERB [Suspect]
     Active Substance: LAPATINIB DITOSYLATE
     Indication: BREAST CANCER
     Dosage: 750 MG, 1X/DAY
     Route: 048
     Dates: start: 20120905, end: 20121025
  9. PANTOPRAZOLE [Concomitant]
     Active Substance: PANTOPRAZOLE
     Dosage: UNK
  10. PACLITAXEL. [Suspect]
     Active Substance: PACLITAXEL
     Indication: BREAST CANCER
     Dosage: 126 MG, UNK
     Route: 042
     Dates: start: 20120905, end: 20121112
  11. GELCLAIR [Concomitant]
     Dosage: UNK

REACTIONS (4)
  - Pneumonitis [Recovered/Resolved]
  - C-reactive protein increased [Unknown]
  - Haemoglobin decreased [Unknown]
  - Mucosal inflammation [Recovered/Resolved]

NARRATIVE: CASE EVENT DATE: 20121025
